FAERS Safety Report 4949338-X (Version None)
Quarter: 2006Q1

REPORT INFORMATION
  Report Type: 
  Country: None (occurrence: None)
  Receive Date: 20060316
  Receipt Date: 20060313
  Transmission Date: 20060701
  Serious: Yes (Hospitalization)
  Sender: FDA-Public Use
  Company Number: 2006BI000581

PATIENT
  Age: 54 Year
  Sex: Female

DRUGS (12)
  1. AVONEX [Suspect]
     Indication: MULTIPLE SCLEROSIS
     Dosage: 30 UG
     Dates: start: 19960101, end: 20060110
  2. AVONEX [Suspect]
     Indication: MULTIPLE SCLEROSIS
     Dosage: 30 UG
     Dates: start: 20060117
  3. SYNTHROID [Concomitant]
  4. REGLAN [Concomitant]
  5. LIPITOR [Concomitant]
  6. HYZAAR [Concomitant]
  7. POTASSIUM CHLORIDE [Concomitant]
  8. CYMBALTA [Concomitant]
  9. REQUIP [Concomitant]
  10. NITROFURANTOIN [Concomitant]
  11. CLONAZEPAM [Concomitant]
  12. INSULIN [Concomitant]

REACTIONS (8)
  - ASTHENIA [None]
  - CATHETER RELATED COMPLICATION [None]
  - DEHYDRATION [None]
  - DIABETES MELLITUS [None]
  - ESCHERICHIA INFECTION [None]
  - NEUROGENIC BLADDER [None]
  - URINARY TRACT INFECTION [None]
  - UROSEPSIS [None]
